FAERS Safety Report 24812124 (Version 5)
Quarter: 2025Q3

REPORT INFORMATION
  Report Type: Report from Study
  Country: GB (occurrence: GB)
  Receive Date: 20250106
  Receipt Date: 20250810
  Transmission Date: 20251021
  Serious: Yes (Other)
  Sender: ALEXION PHARMACEUTICALS
  Company Number: GB-ASTRAZENECA-202501GBR001087GB

PATIENT
  Sex: Female

DRUGS (2)
  1. STRENSIQ [Suspect]
     Active Substance: ASFOTASE ALFA
     Indication: Phosphorus metabolism disorder
     Dosage: 80 MILLIGRAM, TIW
     Dates: start: 20230606
  2. STRENSIQ [Suspect]
     Active Substance: ASFOTASE ALFA
     Dosage: 80 MILLIGRAM, QIW

REACTIONS (8)
  - Neuropathy peripheral [Unknown]
  - Gastrointestinal disorder [Unknown]
  - Urinary tract infection [Unknown]
  - Cystitis [Unknown]
  - Injection site atrophy [Unknown]
  - Injection site reaction [Unknown]
  - Nervous system disorder [Unknown]
  - Drug hypersensitivity [Unknown]
